FAERS Safety Report 8575508-8 (Version None)
Quarter: 2012Q2

REPORT INFORMATION
  Report Type: 
  Country: None (occurrence: None)
  Receive Date: 20120423
  Receipt Date: 20100706
  Transmission Date: 20120825
  Serious: Yes (Other)
  Sender: FDA-Public Use
  Company Number: PHHY2010US40250

PATIENT
  Sex: Female
  Weight: 104.3 kg

DRUGS (11)
  1. PERCOCET [Concomitant]
  2. GLYBURIDE [Concomitant]
  3. SIMVASTATIN [Concomitant]
  4. ASPIRIN [Concomitant]
  5. PLAVIX [Concomitant]
  6. TOPROL-XL [Concomitant]
  7. FOLIC ACID [Concomitant]
  8. AMLODIPINE [Concomitant]
  9. RANITIDINE HYDROCHLORIDE [Concomitant]
  10. EXJADE [Suspect]
     Indication: IRON OVERLOAD
     Dosage: 1000 MG, DAILY, ORAL
     Route: 048
     Dates: start: 20100101, end: 20100503
  11. ALLOPURINOL [Concomitant]

REACTIONS (3)
  - FATIGUE [None]
  - ARTHRALGIA [None]
  - RENAL IMPAIRMENT [None]
